FAERS Safety Report 5649459-2 (Version None)
Quarter: 2008Q1

REPORT INFORMATION
  Report Type: 
  Country: None (occurrence: None)
  Receive Date: 20080304
  Receipt Date: 20080221
  Transmission Date: 20080703
  Serious: Yes (Death)
  Sender: FDA-Public Use
  Company Number: IN-WYE-H02915908

PATIENT
  Age: 64 Year
  Sex: Female

DRUGS (1)
  1. CORDARONE [Suspect]
     Indication: CHRONIC OBSTRUCTIVE PULMONARY DISEASE
     Dosage: 4 AMPULES DAILY DOSE
     Route: 042

REACTIONS (1)
  - DEATH [None]
